FAERS Safety Report 4763417-1 (Version None)
Quarter: 2005Q3

REPORT INFORMATION
  Report Type: 
  Country: None (occurrence: None)
  Receive Date: 20050907
  Receipt Date: 20050907
  Transmission Date: 20060218
  Serious: Yes (Hospitalization)
  Sender: FDA-Public Use
  Company Number: None

PATIENT
  Age: 7 Year
  Sex: Male
  Weight: 19.5047 kg

DRUGS (1)
  1. CHILDRENS IBUPROFEN    2 TSP.   MOTRIN [Suspect]
     Dosage: 2 TSP.    AS NEEDED FOR PAIN   PO
     Route: 048

REACTIONS (1)
  - STEVENS-JOHNSON SYNDROME [None]
